FAERS Safety Report 6832895-6 (Version None)
Quarter: 2010Q3

REPORT INFORMATION
  Report Type: 
  Country: None (occurrence: None)
  Receive Date: 20100712
  Receipt Date: 20070522
  Transmission Date: 20110219
  Serious: No
  Sender: FDA-Public Use
  Company Number: US-PFIZER INC-2007023823

PATIENT
  Sex: Female
  Weight: 90.72 kg

DRUGS (11)
  1. VARENICLINE [Suspect]
     Indication: SMOKING CESSATION THERAPY
     Dates: start: 20070322
  2. VALIUM [Concomitant]
     Indication: POST-TRAUMATIC STRESS DISORDER
  3. REMERON [Concomitant]
  4. PREMARIN [Concomitant]
  5. HYDROCHLOROTHIAZIDE [Concomitant]
  6. VITAMIN B-12 [Concomitant]
  7. FLOVENT [Concomitant]
  8. ALBUTEROL [Concomitant]
  9. MIACALCIN [Concomitant]
  10. NEXIUM [Concomitant]
     Indication: ABDOMINAL DISCOMFORT
  11. NASAL PREPARATIONS [Concomitant]

REACTIONS (1)
  - PANIC REACTION [None]
